FAERS Safety Report 24255165 (Version 1)
Quarter: 2024Q3

REPORT INFORMATION
  Report Type: Spontaneous
  Country: US (occurrence: None)
  Receive Date: 20240827
  Receipt Date: 20240827
  Transmission Date: 20241017
  Serious: Yes (Hospitalization)
  Sender: Public
  Company Number: None

PATIENT
  Sex: Female

DRUGS (2)
  1. CARBOPLATIN [Suspect]
     Active Substance: CARBOPLATIN
  2. TAXOL [Concomitant]
     Active Substance: PACLITAXEL

REACTIONS (5)
  - Catheter site dehiscence [None]
  - Infection [None]
  - Infusion site pain [None]
  - Discomfort [None]
  - Blood pressure increased [None]

NARRATIVE: CASE EVENT DATE: 20240824
